FAERS Safety Report 4881670-0 (Version None)
Quarter: 2006Q1

REPORT INFORMATION
  Report Type: 
  Country: None (occurrence: None)
  Receive Date: 20060112
  Receipt Date: 20060112
  Transmission Date: 20060701
  Serious: Yes (Hospitalization)
  Sender: FDA-Public Use
  Company Number: None

PATIENT
  Age: 58 Year
  Sex: Male
  Weight: 78.4723 kg

DRUGS (1)
  1. IBUPROFEN [Suspect]
     Indication: PROCEDURAL PAIN
     Dosage: 800MG  EVERY 6 TO 8 HOURS  PO
     Route: 048
     Dates: start: 20051220, end: 20051226

REACTIONS (1)
  - CARDIAC FAILURE CONGESTIVE [None]
